FAERS Safety Report 10830562 (Version 1)
Quarter: 2015Q1

REPORT INFORMATION
  Report Type: Spontaneous
  Country: JP (occurrence: JP)
  Receive Date: 20150219
  Receipt Date: 20150219
  Transmission Date: 20150721
  Serious: Yes (Other)
  Sender: FDA-Public Use
  Company Number: JP-TEVA-541192ISR

PATIENT
  Age: 74 Year
  Sex: Female

DRUGS (2)
  1. CARBOPLATIN. [Suspect]
     Active Substance: CARBOPLATIN
     Indication: METASTASES TO LUNG
     Dosage: AN AREA UNDER THE CURVE OF 2
     Route: 065
  2. PACLITAXEL. [Suspect]
     Active Substance: PACLITAXEL
     Indication: METASTASES TO LUNG
     Dosage: 100 MG/M2
     Route: 065

REACTIONS (4)
  - Shock [Recovered/Resolved]
  - Ileus [Recovered/Resolved]
  - Peritonitis [Recovered/Resolved]
  - Intestinal ischaemia [Recovered/Resolved]
